FAERS Safety Report 5092930-5 (Version None)
Quarter: 2006Q3

REPORT INFORMATION
  Report Type: 
  Country: None (occurrence: None)
  Receive Date: 20060726
  Receipt Date: 20060629
  Transmission Date: 20061208
  Serious: No
  Sender: FDA-Public Use
  Company Number: 012350

PATIENT
  Age: 45 Year
  Sex: Male

DRUGS (5)
  1. PRIALT [Suspect]
     Indication: BACK PAIN
     Dosage: 0.1 UG, ONCE/HOUR, INTRATHECAL; SEE IMAGE
     Route: 037
     Dates: start: 20060531, end: 20060620
  2. PRIALT [Suspect]
     Indication: BACK PAIN
     Dosage: 0.1 UG, ONCE/HOUR, INTRATHECAL; SEE IMAGE
     Route: 037
     Dates: start: 20060620
  3. METHADONE HCL [Concomitant]
  4. OXYCODONE HCL [Concomitant]
  5. LYRICA [Concomitant]

REACTIONS (3)
  - ABDOMINAL PAIN UPPER [None]
  - DIARRHOEA [None]
  - URINARY RETENTION [None]
